FAERS Safety Report 5517857-3 (Version None)
Quarter: 2007Q4

REPORT INFORMATION
  Report Type: 
  Country: None (occurrence: None)
  Receive Date: 20071113
  Receipt Date: 20071025
  Transmission Date: 20080405
  Serious: Yes (Hospitalization)
  Sender: FDA-Public Use
  Company Number: ISPH-2007-0020

PATIENT
  Age: 78 Year
  Sex: Female

DRUGS (3)
  1. AZASITE [Suspect]
     Indication: EYE OPERATION
     Dosage: 1GTT, TID, OPTHALMIC
     Route: 047
     Dates: start: 20071015
  2. XIBROM (BROMFENAC SODIUM) [Concomitant]
  3. ECONOPRED (PREDNISOLONE ACETATE) [Concomitant]

REACTIONS (2)
  - CEREBROVASCULAR ACCIDENT [None]
  - FALL [None]
